FAERS Safety Report 10176437 (Version 2)
Quarter: 2014Q2

REPORT INFORMATION
  Report Type: Spontaneous
  Country: FR (occurrence: FR)
  Receive Date: 20140516
  Receipt Date: 20140626
  Transmission Date: 20141212
  Serious: Yes (Other)
  Sender: FDA-Public Use
  Company Number: FR-PFIZER INC-2014130408

PATIENT
  Sex: 0

DRUGS (1)
  1. PROSTINE E2 [Suspect]
     Indication: INDUCTION OF CERVIX RIPENING
     Dosage: 2 MG, UNK
     Route: 067
     Dates: start: 20140411

REACTIONS (2)
  - Neonatal asphyxia [Unknown]
  - Bradycardia foetal [Unknown]
